FAERS Safety Report 8104385 (Version 3)
Quarter: 2014Q2

REPORT INFORMATION
  Report Type: Spontaneous
  Country: US (occurrence: US)
  Receive Date: 20110824
  Receipt Date: 20140605
  Transmission Date: 20141212
  Serious: Yes (Hospitalization)
  Sender: FDA-Public Use
  Company Number: US-GLAXOSMITHKLINE-A0933153A

PATIENT
  Age: 56 Year
  Sex: Female
  Weight: 88.6 kg

DRUGS (7)
  1. AVANDIA [Suspect]
     Indication: TYPE 2 DIABETES MELLITUS
     Dosage: 4MG PER DAY
     Route: 048
     Dates: start: 200407, end: 20070717
  2. METFORMIN [Concomitant]
  3. LOVASTATIN [Concomitant]
  4. GLYBURIDE [Concomitant]
  5. LAMICTAL [Concomitant]
  6. FEXOFENADINE [Concomitant]
  7. METOLAZONE [Concomitant]

REACTIONS (3)
  - Myocardial infarction [Not Recovered/Not Resolved]
  - Cardiac failure congestive [Unknown]
  - Disturbance in attention [Unknown]
